FAERS Safety Report 17712872 (Version 1)
Quarter: 2020Q2

REPORT INFORMATION
  Report Type: Spontaneous
  Country: US (occurrence: US)
  Receive Date: 20200427
  Receipt Date: 20200427
  Transmission Date: 20200714
  Serious: No
  Sender: FDA-Public Use
  Company Number: US-JNJFOC-20200432075

PATIENT
  Sex: Female
  Weight: 56.75 kg

DRUGS (1)
  1. XARELTO [Suspect]
     Active Substance: RIVAROXABAN
     Indication: KNEE ARTHROPLASTY
     Dosage: ^EXACTLY 28 DAYS ?^15 MG TWICE DAILY AND 20 MG ONCE DAILY FROM DAY 23 ON.^
     Route: 048
     Dates: start: 20200424

REACTIONS (2)
  - Pain in extremity [Unknown]
  - Nausea [Unknown]

NARRATIVE: CASE EVENT DATE: 2020
